FAERS Safety Report 6221282-X (Version None)
Quarter: 2009Q2

REPORT INFORMATION
  Report Type: 
  Country: None (occurrence: None)
  Receive Date: 20090610
  Receipt Date: 20090603
  Transmission Date: 20091009
  Serious: Yes (Death)
  Sender: FDA-Public Use
  Company Number: HU-ABBOTT-09P-076-0575396-00

PATIENT
  Sex: Female
  Weight: 90 kg

DRUGS (9)
  1. LUCRIN DEPOT [Suspect]
     Indication: PROSTATE CANCER
     Route: 058
     Dates: start: 20040501, end: 20090108
  2. PLAVIX [Concomitant]
     Indication: THROMBOSIS PROPHYLAXIS
  3. COAPROVEL [Concomitant]
     Indication: HYPERTENSION
  4. LOGIMAX [Concomitant]
     Indication: HYPERTENSION
  5. CYNT [Concomitant]
     Indication: HYPERTENSION
  6. ADEXOR [Concomitant]
     Indication: ANGINA PECTORIS
  7. MINIPRESS [Concomitant]
     Indication: HYPERTENSION
  8. ATORVA [Concomitant]
     Indication: HYPERCHOLESTEROLAEMIA
  9. PLENDIL [Concomitant]
     Indication: HYPERTENSION

REACTIONS (2)
  - CEREBROVASCULAR ACCIDENT [None]
  - SUBDURAL HAEMATOMA [None]
